FAERS Safety Report 8058125-8 (Version None)
Quarter: 2012Q1

REPORT INFORMATION
  Report Type: 
  Country: None (occurrence: None)
  Receive Date: 20120117
  Receipt Date: 20120117
  Transmission Date: 20120608
  Serious: Yes (Other)
  Sender: FDA-Public Use
  Company Number: None

PATIENT
  Age: 71 Year
  Sex: Male

DRUGS (1)
  1. TAMSULOSIN HYDROCHLORIDE [Suspect]
     Indication: BENIGN PROSTATIC HYPERPLASIA
     Dosage: 1 CAPSULE AT BEDTIME
     Dates: start: 20111215, end: 20120109

REACTIONS (3)
  - EYE SWELLING [None]
  - VITREOUS FLOATERS [None]
  - PRODUCT SUBSTITUTION ISSUE [None]
